FAERS Safety Report 11534209 (Version 1)
Quarter: 2015Q3

REPORT INFORMATION
  Report Type: Spontaneous
  Country: US (occurrence: None)
  Receive Date: 20150921
  Receipt Date: 20150921
  Transmission Date: 20151125
  Serious: No
  Sender: FDA-Public Use
  Company Number: None

PATIENT
  Age: 11 Year
  Sex: Male
  Weight: 41.4 kg

DRUGS (5)
  1. CISPLATIN. [Suspect]
     Active Substance: CISPLATIN
     Dates: end: 20130628
  2. G-CSF (FILGRASTIM, AMGEN) [Suspect]
     Active Substance: FILGRASTIM
     Dates: end: 20130717
  3. VINCRISTINE SULFATE. [Suspect]
     Active Substance: VINCRISTINE SULFATE
     Dates: end: 20140705
  4. CYCLOPHOPHAMIDE [Suspect]
     Active Substance: CYCLOPHOSPHAMIDE
     Dates: end: 20130630
  5. ACCUTANE [Suspect]
     Active Substance: ISOTRETINOIN
     Dates: end: 20140112

REACTIONS (6)
  - Ataxia [None]
  - Fatigue [None]
  - Brain neoplasm [None]
  - Osteosarcoma [None]
  - Hepatic mass [None]
  - Cyanopsia [None]

NARRATIVE: CASE EVENT DATE: 20150429
